FAERS Safety Report 23516763 (Version 1)
Quarter: 2024Q1

REPORT INFORMATION
  Report Type: Spontaneous
  Country: FR (occurrence: FR)
  Receive Date: 20240213
  Receipt Date: 20240213
  Transmission Date: 20240410
  Serious: Yes (Hospitalization)
  Sender: FDA-Public Use
  Company Number: FR-SUN PHARMACEUTICAL INDUSTRIES LTD-2024RR-430811

PATIENT
  Age: 58 Year
  Sex: Male
  Weight: 66 kg

DRUGS (10)
  1. PANTOPRAZOLE [Suspect]
     Active Substance: PANTOPRAZOLE
     Indication: Gastrointestinal disorder
     Dosage: 40 MILLIGRAM, DAILY
     Route: 040
     Dates: start: 20230930, end: 20231009
  2. NEFOPAM [Suspect]
     Active Substance: NEFOPAM
     Indication: Abdominal pain
     Dosage: 20 MILLIGRAM, AS NECESSA
     Route: 040
     Dates: start: 20231002, end: 20231007
  3. PIPERACILLIN SODIUM\TAZOBACTAM SODIUM [Suspect]
     Active Substance: PIPERACILLIN SODIUM\TAZOBACTAM SODIUM
     Indication: Antibiotic therapy
     Dosage: 12 GRAM, DAILY
     Route: 040
     Dates: start: 20231004, end: 20231008
  4. PIPERACILLIN SODIUM\TAZOBACTAM SODIUM [Suspect]
     Active Substance: PIPERACILLIN SODIUM\TAZOBACTAM SODIUM
     Dosage: 12 GRAM, DAILY
     Route: 065
     Dates: start: 20230925, end: 20231002
  5. IOMERON [Suspect]
     Active Substance: IOMEPROL
     Indication: Computerised tomogram
     Dosage: 95 MILLILITER, IN TOTAL
     Route: 040
     Dates: start: 20231003, end: 20231003
  6. IOMERON [Suspect]
     Active Substance: IOMEPROL
     Dosage: 95 MILLILITER, TOTAL 1
     Route: 065
     Dates: start: 20230925, end: 20230925
  7. CASPOFUNGIN [Concomitant]
     Active Substance: CASPOFUNGIN
     Indication: Product used for unknown indication
     Dosage: 50 MILLIGRAM, DAILY
     Route: 040
     Dates: start: 20231004
  8. AMIKACIN [Concomitant]
     Active Substance: AMIKACIN
     Indication: Product used for unknown indication
     Dosage: UNK
     Route: 040
     Dates: start: 20230926, end: 20230926
  9. METRONIDAZOLE [Concomitant]
     Active Substance: METRONIDAZOLE
     Indication: Product used for unknown indication
     Dosage: UNK
     Route: 040
     Dates: start: 20230901, end: 20230907
  10. CEFOTAXIME [Concomitant]
     Active Substance: CEFOTAXIME SODIUM
     Indication: Product used for unknown indication
     Dosage: UNK
     Route: 040
     Dates: start: 20230901, end: 20230907

REACTIONS (1)
  - Acute kidney injury [Recovering/Resolving]

NARRATIVE: CASE EVENT DATE: 20231005
